FAERS Safety Report 8186978-1 (Version None)
Quarter: 2012Q1

REPORT INFORMATION
  Report Type: 
  Country: None (occurrence: None)
  Receive Date: 20120213
  Receipt Date: 20111214
  Transmission Date: 20120608
  Serious: No
  Sender: FDA-Public Use
  Company Number: 1000026310

PATIENT
  Age: 48 Year
  Sex: Male

DRUGS (2)
  1. SUMATRIPTAN SUCCINATE [Concomitant]
  2. SAVELLA [Suspect]
     Indication: ALLODYNIA
     Dosage: 12.5 MG (12.5 MG, 1 IN 1 D), ORAL
     Route: 048
     Dates: start: 20110901, end: 20110901

REACTIONS (6)
  - ALLODYNIA [None]
  - ALOPECIA [None]
  - OFF LABEL USE [None]
  - HYPERHIDROSIS [None]
  - SEXUAL DYSFUNCTION [None]
  - PALPITATIONS [None]
